FAERS Safety Report 22183554 (Version 1)
Quarter: 2023Q2

REPORT INFORMATION
  Report Type: Spontaneous
  Country: US (occurrence: US)
  Receive Date: 20230406
  Receipt Date: 20230406
  Transmission Date: 20230721
  Serious: No
  Sender: FDA-Public Use
  Company Number: US-009507513-2303USA005558

PATIENT
  Age: 3 Year
  Sex: Female

DRUGS (5)
  1. TEMODAR [Suspect]
     Active Substance: TEMOZOLOMIDE
     Indication: Ganglioneuroma
     Dosage: 60 MG/M2 DAY
     Route: 048
  2. CYCLOPHOSPHAMIDE [Concomitant]
     Active Substance: CYCLOPHOSPHAMIDE
     Indication: Ganglioneuroma
     Dosage: 50 MG/M2 FOR 21 DAYS
  3. VALPROIC ACID [Concomitant]
     Active Substance: VALPROIC ACID
     Indication: Ganglioneuroma
     Dosage: 15 MG/KG FOR 21 DAYS
  4. CELECOXIB [Concomitant]
     Active Substance: CELECOXIB
     Indication: Ganglioneuroma
     Dosage: 250 MG/M2/DAY
  5. BEVACIZUMAB [Concomitant]
     Active Substance: BEVACIZUMAB
     Indication: Ganglioneuroma
     Dosage: 5 MG/KG EVERY 3 WEEKS
     Route: 042

REACTIONS (1)
  - Product use in unapproved indication [Unknown]
